FAERS Safety Report 5730114-5 (Version None)
Quarter: 2008Q2

REPORT INFORMATION
  Report Type: 
  Country: None (occurrence: None)
  Receive Date: 20080507
  Receipt Date: 20080428
  Transmission Date: 20081010
  Serious: Yes (Other)
  Sender: FDA-Public Use
  Company Number: PHFR2008GB01258

PATIENT
  Age: 27 Year
  Sex: Male

DRUGS (1)
  1. CLOZARIL [Suspect]
     Indication: SCHIZOPHRENIA
     Dosage: 200MG DAILY
     Route: 048
     Dates: start: 20021109

REACTIONS (3)
  - LYMPHOCYTE COUNT INCREASED [None]
  - LYMPHOCYTOSIS [None]
  - WHITE BLOOD CELL COUNT INCREASED [None]
